FAERS Safety Report 9682036 (Version 2)
Quarter: 2013Q4

REPORT INFORMATION
  Report Type: Report from Study
  Country: SE (occurrence: SE)
  Receive Date: 20131111
  Receipt Date: 20131202
  Transmission Date: 20140711
  Serious: Yes (Hospitalization)
  Sender: FDA-Public Use
  Company Number: SE-ROCHE-1297640

PATIENT
  Age: 61 Year
  Sex: Female

DRUGS (31)
  1. PERTUZUMAB [Suspect]
     Indication: HER-2 POSITIVE BREAST CANCER
     Dosage: LOADING DOSE AS PER PROTOCOL ?DATE OF LAST DOSE PRIOR TO SAE ONSET: 17/SEP/2013
     Route: 042
     Dates: start: 20130917
  2. PERTUZUMAB [Suspect]
     Dosage: MAINTENANCE DOSE AS PER PROTOCOL.
     Route: 042
  3. TRASTUZUMAB [Suspect]
     Indication: HER-2 POSITIVE BREAST CANCER
     Dosage: LOADING DOSE AS PER PROTOCOL ?DATE OF LAST DOSE PRIOR TO SAE ONSET: 17/SEP/2013
     Route: 042
     Dates: start: 20130917
  4. TRASTUZUMAB [Suspect]
     Dosage: MAINTENANCE DOSE AS PER PROTOCOL
     Route: 042
  5. DOCETAXEL [Suspect]
     Indication: HER-2 POSITIVE BREAST CANCER
     Dosage: DATE OF LAST DOSE PRIOR TO SAE ONSET: 17/SEP/2013
     Route: 042
     Dates: start: 20130917
  6. IMOVANE [Concomitant]
     Route: 065
     Dates: start: 2000
  7. IMOVANE [Concomitant]
     Route: 065
     Dates: start: 20131119
  8. FLUKONAZOL [Concomitant]
     Route: 065
     Dates: start: 20131008
  9. METFORMIN [Concomitant]
     Route: 065
     Dates: start: 1990
  10. METFORMIN [Concomitant]
     Route: 065
     Dates: start: 2003, end: 20131029
  11. ATACAND PLUS [Concomitant]
     Dosage: 32MG/12.5MG
     Route: 065
     Dates: start: 1990, end: 20131029
  12. LEVAXIN [Concomitant]
     Route: 065
     Dates: start: 1990
  13. SAROTEN [Concomitant]
     Route: 065
     Dates: start: 2000
  14. HUMULIN [Concomitant]
     Dosage: 6 E
     Route: 065
     Dates: start: 2003
  15. INSULATARD [Concomitant]
     Dosage: 20 E
     Route: 065
     Dates: start: 2003
  16. INSULATARD [Concomitant]
     Dosage: 60 E
     Route: 065
     Dates: start: 2003
  17. SERTRALINE [Concomitant]
     Route: 065
     Dates: start: 2000
  18. SERTRALINE [Concomitant]
     Route: 065
     Dates: start: 2001
  19. LIPITOR [Concomitant]
     Route: 065
     Dates: start: 1990
  20. OMEPRAZOL [Concomitant]
     Route: 065
     Dates: start: 20130917
  21. OMEPRAZOL [Concomitant]
     Route: 065
     Dates: start: 20130916
  22. MADOPARK [Concomitant]
     Dosage: 100MG/25
     Route: 065
     Dates: start: 1990
  23. DIMOR [Concomitant]
     Route: 065
     Dates: start: 20130918
  24. OPIUM [Concomitant]
     Route: 065
     Dates: start: 20131008
  25. FURIX RETARD [Concomitant]
     Dosage: 30-60 MG
     Route: 065
     Dates: start: 1990, end: 20131029
  26. IMIGRAN [Concomitant]
     Route: 065
     Dates: start: 1982
  27. CITODON [Concomitant]
     Dosage: 500MG/30MG
     Route: 065
     Dates: start: 1982
  28. PARAFLEX [Concomitant]
     Dosage: 250 - 500MG
     Route: 065
     Dates: start: 1990
  29. PANODIL FORTE [Concomitant]
     Route: 065
     Dates: start: 1990
  30. OXASCAND [Concomitant]
     Route: 065
     Dates: start: 20130829
  31. LORATADIN [Concomitant]
     Route: 065
     Dates: start: 2000

REACTIONS (1)
  - Dehydration [Recovered/Resolved]
